FAERS Safety Report 6037052-1 (Version None)
Quarter: 2009Q1

REPORT INFORMATION
  Report Type: 
  Country: None (occurrence: None)
  Receive Date: 20090114
  Receipt Date: 20090109
  Transmission Date: 20090719
  Serious: Yes (Other)
  Sender: FDA-Public Use
  Company Number: US-JNJFOC-20080906885

PATIENT
  Sex: Female

DRUGS (7)
  1. INVEGA [Suspect]
     Route: 048
  2. INVEGA [Suspect]
     Indication: BIPOLAR DISORDER
     Route: 048
  3. RISPERIDONE [Suspect]
     Indication: BIPOLAR DISORDER
  4. LAMICTAL [Concomitant]
     Indication: BIPOLAR DISORDER
     Route: 048
  5. CLONAZEPAM [Concomitant]
     Indication: ANXIETY
     Route: 048
  6. CALCIUM [Concomitant]
     Indication: MEDICAL DIET
  7. ALL OTHER THERAPEUTIC PRODUCTS [Concomitant]
     Indication: ATTENTION DEFICIT/HYPERACTIVITY DISORDER
     Route: 048

REACTIONS (3)
  - BRONCHITIS [None]
  - MUSCLE SPASMS [None]
  - PNEUMONIA [None]
